FAERS Safety Report 24387322 (Version 2)
Quarter: 2024Q4

REPORT INFORMATION
  Report Type: Report from Study
  Country: US (occurrence: US)
  Receive Date: 20241002
  Receipt Date: 20241010
  Transmission Date: 20250115
  Serious: Yes (Hospitalization, Other)
  Sender: BAYER
  Company Number: US-BAYER-2024A125260

PATIENT
  Age: 77 Year
  Sex: Female
  Weight: 111.57 kg

DRUGS (21)
  1. ADEMPAS [Suspect]
     Active Substance: RIOCIGUAT
     Indication: Pulmonary arterial hypertension
     Dosage: UNK
     Route: 048
     Dates: start: 20240618
  2. ADEMPAS [Suspect]
     Active Substance: RIOCIGUAT
     Indication: Pulmonary arterial hypertension
     Dosage: 1.5 MG, TID
     Route: 048
  3. ADEMPAS [Suspect]
     Active Substance: RIOCIGUAT
     Indication: Pulmonary arterial hypertension
     Dosage: 1.5 MG, TID
     Route: 048
  4. ADEMPAS [Suspect]
     Active Substance: RIOCIGUAT
     Indication: Pulmonary arterial hypertension
     Dosage: 2 MG, TID
     Route: 048
  5. ADEMPAS [Suspect]
     Active Substance: RIOCIGUAT
     Indication: Pulmonary arterial hypertension
     Dosage: 1 MG, TID
  6. OMEPRAZOLE [Concomitant]
     Active Substance: OMEPRAZOLE
  7. CARVEDILOL [Concomitant]
     Active Substance: CARVEDILOL
  8. FLUOXETINE HYDROCHLORIDE [Concomitant]
     Active Substance: FLUOXETINE HYDROCHLORIDE
  9. HYDROMORPHONE [Concomitant]
     Active Substance: HYDROMORPHONE
  10. TIMOLOL MALEATE [Concomitant]
     Active Substance: TIMOLOL MALEATE
  11. METOLAZONE [Concomitant]
     Active Substance: METOLAZONE
  12. LINZESS [Concomitant]
     Active Substance: LINACLOTIDE
  13. ALDACTONE [Concomitant]
     Active Substance: SPIRONOLACTONE
  14. UPTRAVI [Concomitant]
     Active Substance: SELEXIPAG
  15. LATANOPROST [Concomitant]
     Active Substance: LATANOPROST
  16. VITAMIN D3 [Concomitant]
     Active Substance: CHOLECALCIFEROL
  17. PROBIOTICS NOS [Concomitant]
     Active Substance: PROBIOTICS NOS
  18. TRAZODONE HCL [Concomitant]
     Active Substance: TRAZODONE HYDROCHLORIDE
  19. TORSEMIDE [Concomitant]
     Active Substance: TORSEMIDE
  20. VITAMINS [Concomitant]
     Active Substance: VITAMINS
  21. MYRBETRIQ [Concomitant]
     Active Substance: MIRABEGRON

REACTIONS (10)
  - Syncope [Not Recovered/Not Resolved]
  - Loss of consciousness [None]
  - Hypotension [Not Recovered/Not Resolved]
  - Presyncope [None]
  - Dehydration [None]
  - Blood potassium decreased [None]
  - Meniere^s disease [None]
  - Urinary tract infection [Not Recovered/Not Resolved]
  - Weight decreased [None]
  - Dizziness [None]

NARRATIVE: CASE EVENT DATE: 20240101
